FAERS Safety Report 12429696 (Version 1)
Quarter: 2016Q2

REPORT INFORMATION
  Report Type: Spontaneous
  Country: IN (occurrence: IN)
  Receive Date: 20160602
  Receipt Date: 20160602
  Transmission Date: 20160815
  Serious: Yes (Death, Hospitalization)
  Sender: FDA-Public Use
  Company Number: IN-FRESENIUS KABI-FK201603228

PATIENT
  Age: 47 Year
  Sex: Male

DRUGS (5)
  1. BLEOMYCIN [Suspect]
     Active Substance: BLEOMYCIN SULFATE
     Route: 065
     Dates: start: 20140626, end: 20140814
  2. DACARBAZINE. [Concomitant]
     Active Substance: DACARBAZINE
     Indication: HODGKIN^S DISEASE
  3. ADRIAMYCIN [Concomitant]
     Active Substance: DOXORUBICIN HYDROCHLORIDE
     Indication: HODGKIN^S DISEASE
  4. BLEOMYCIN [Suspect]
     Active Substance: BLEOMYCIN SULFATE
     Indication: HODGKIN^S DISEASE
     Route: 065
     Dates: start: 20140105, end: 20140128
  5. VINCRISTINE [Concomitant]
     Active Substance: VINCRISTINE
     Indication: HODGKIN^S DISEASE

REACTIONS (1)
  - Pulmonary fibrosis [Fatal]
